FAERS Safety Report 22225867 (Version 1)
Quarter: 2023Q2

REPORT INFORMATION
  Report Type: Other
  Country: ES (occurrence: ES)
  Receive Date: 20230419
  Receipt Date: 20230419
  Transmission Date: 20230721
  Serious: Yes (Death, Hospitalization, Congenital Anomaly, Other)
  Sender: FDA-Public Use
  Company Number: ES-CELLTRION INC.-2022ES020709

PATIENT

DRUGS (14)
  1. RITUXIMAB [Suspect]
     Active Substance: RITUXIMAB
     Indication: Disease progression
     Dosage: UNK, CYCLIC (RESCUE TREATMENT WITH POLYCHEMOTHERAPY, R-BAC REGIMEN), FREQUENCY TIME : CYCLICAL
     Route: 065
     Dates: start: 2022
  2. RITUXIMAB [Suspect]
     Active Substance: RITUXIMAB
     Indication: Mantle cell lymphoma stage IV
     Dosage: UNK, CYCLIC (1ST LINE CHEMOTHERAPY, R-CHOP REGIMEN, 6 CYCLES), FREQUENCY TIME : CYCLICAL
     Route: 065
  3. RITUXIMAB [Suspect]
     Active Substance: RITUXIMAB
     Indication: Malignant neoplasm progression
  4. PREDNISOLONE [Suspect]
     Active Substance: PREDNISOLONE
     Indication: Mantle cell lymphoma stage IV
     Dosage: UNK UNK, UNKNOWN FREQ.
     Route: 065
  5. PREDNISOLONE [Suspect]
     Active Substance: PREDNISOLONE
     Dosage: UNK UNK, CYCLIC (1ST LINE CHEMOTHERAPY, R-CHOP REGIMEN, 6 CYCLES), FREQUENCY TIME : CYCLICAL
     Route: 065
  6. CYTARABINE [Suspect]
     Active Substance: CYTARABINE
     Indication: Disease progression
     Dosage: UNK UNK, CYCLIC (RESCUE TREATMENT WITH POLYCHEMOTHERAPY, R-BAC REGIMEN), FREQUENCY TIME : CYCLICAL
     Route: 065
  7. CYTARABINE [Suspect]
     Active Substance: CYTARABINE
     Indication: Mantle cell lymphoma stage IV
  8. CYTARABINE [Suspect]
     Active Substance: CYTARABINE
     Indication: Malignant neoplasm progression
  9. VINCRISTINE [Suspect]
     Active Substance: VINCRISTINE
     Indication: Mantle cell lymphoma stage IV
     Dosage: UNK UNK, CYCLIC (1ST LINE CHEMOTHERAPY, R-CHOP REGIMEN, 6 CYCLES), FREQUENCY TIME : CYCLICAL
     Route: 065
  10. BENDAMUSTINE HYDROCHLORIDE [Suspect]
     Active Substance: BENDAMUSTINE HYDROCHLORIDE
     Indication: Malignant neoplasm progression
     Dosage: UNK UNK, CYCLIC (RESCUE TREATMENT WITH POLYCHEMOTHERAPY, R-BAC REGIMEN), FREQUENCY TIME : CYCLICAL
     Route: 042
  11. BENDAMUSTINE HYDROCHLORIDE [Suspect]
     Active Substance: BENDAMUSTINE HYDROCHLORIDE
     Indication: Disease progression
  12. BENDAMUSTINE HYDROCHLORIDE [Suspect]
     Active Substance: BENDAMUSTINE HYDROCHLORIDE
     Indication: Mantle cell lymphoma stage IV
  13. DOXORUBICIN [Suspect]
     Active Substance: DOXORUBICIN
     Indication: Mantle cell lymphoma stage IV
     Dosage: UNK UNK, CYCLIC (1ST LINE CHEMOTHERAPY, R-CHOP REGIMEN, 6 CYCLES), FREQUENCY TIME : CYCLICAL; ADDITI
     Route: 065
  14. CYCLOPHOSPHAMIDE [Suspect]
     Active Substance: CYCLOPHOSPHAMIDE
     Indication: Mantle cell lymphoma stage IV
     Dosage: UNK UNK, CYCLIC (1ST LINE CHEMOTHERAPY, R-CHOP REGIMEN, 6 CYCLES), FREQUENCY TIME : CYCLICAL
     Route: 065

REACTIONS (17)
  - Disease progression [Fatal]
  - General physical health deterioration [Fatal]
  - Pleural effusion [Fatal]
  - Neuroendocrine carcinoma of the skin [Fatal]
  - Malignant neoplasm progression [Fatal]
  - Pneumonia [Fatal]
  - Hydronephrosis [Unknown]
  - Pleural effusion [Recovered/Resolved]
  - Urethral obstruction [Unknown]
  - Aplasia [Unknown]
  - Cardiac failure [Unknown]
  - Pathogen resistance [Recovered/Resolved]
  - Pneumonia pseudomonal [Recovered/Resolved]
  - Scrotal oedema [Not Recovered/Not Resolved]
  - Nodule [Unknown]
  - Back pain [Unknown]
  - Off label use [Unknown]
